FAERS Safety Report 6938604-4 (Version None)
Quarter: 2010Q3

REPORT INFORMATION
  Report Type: 
  Country: None (occurrence: None)
  Receive Date: 20100824
  Receipt Date: 20100818
  Transmission Date: 20110219
  Serious: Yes (Death, Hospitalization)
  Sender: FDA-Public Use
  Company Number: US-GILEAD-2010-0030959

PATIENT
  Sex: Male
  Weight: 70.7 kg

DRUGS (8)
  1. LETAIRIS [Suspect]
     Indication: PULMONARY ARTERIAL HYPERTENSION
     Route: 048
     Dates: start: 20070925
  2. LASIX [Concomitant]
  3. ISOSORBIDE MONONITRATE [Concomitant]
  4. DUONEB [Concomitant]
  5. SEREVENT [Concomitant]
  6. WELLBUTRIN XL [Concomitant]
  7. XANAX [Concomitant]
  8. ARICEPT [Concomitant]

REACTIONS (1)
  - LUNG NEOPLASM MALIGNANT [None]
